FAERS Safety Report 10510768 (Version 1)
Quarter: 2014Q4

REPORT INFORMATION
  Report Type: Spontaneous
  Country: US (occurrence: US)
  Receive Date: 20141010
  Receipt Date: 20141010
  Transmission Date: 20150528
  Serious: Yes (Death, Other)
  Sender: FDA-Public Use
  Company Number: US-PFIZER INC-2014278087

PATIENT
  Sex: Male

DRUGS (2)
  1. XANAX [Concomitant]
     Active Substance: ALPRAZOLAM
     Indication: DEPRESSION
     Dosage: UNK
  2. CHANTIX [Suspect]
     Active Substance: VARENICLINE TARTRATE
     Dosage: UNK

REACTIONS (1)
  - Completed suicide [Fatal]

NARRATIVE: CASE EVENT DATE: 20141008
